FAERS Safety Report 14418516 (Version 3)
Quarter: 2018Q1

REPORT INFORMATION
  Report Type: Spontaneous
  Country: US (occurrence: US)
  Receive Date: 20180122
  Receipt Date: 20180312
  Transmission Date: 20180509
  Serious: No
  Sender: FDA-Public Use
  Company Number: PHEH2018US002336

PATIENT
  Sex: Male
  Weight: 73.47 kg

DRUGS (1)
  1. TIMOLOL GFS [Suspect]
     Active Substance: TIMOLOL MALEATE
     Indication: GLAUCOMA
     Dosage: 1 GTT, QD
     Route: 047

REACTIONS (4)
  - Incorrect dose administered [Unknown]
  - Product dropper issue [Unknown]
  - Product container issue [Unknown]
  - Product packaging quantity issue [Unknown]
